FAERS Safety Report 8099422-X (Version None)
Quarter: 2012Q1

REPORT INFORMATION
  Report Type: 
  Country: None (occurrence: None)
  Receive Date: 20120129
  Receipt Date: 20111005
  Transmission Date: 20120608
  Serious: No
  Sender: FDA-Public Use
  Company Number: US-ABBOTT-11P-163-0861474-00

PATIENT
  Age: 64 Year
  Sex: Male

DRUGS (8)
  1. DOXAZOSIN MESYLATE [Concomitant]
     Indication: HYPERTENSION
     Dosage: DAILY
  2. SIMVASTATIN [Concomitant]
     Indication: BLOOD CHOLESTEROL INCREASED
     Dosage: AT BEDTIME
  3. TRIAMTERENE [Concomitant]
     Indication: DIURETIC THERAPY
     Dosage: 37.5/25MG DAILY
  4. ASPIRIN [Concomitant]
     Indication: THROMBOSIS PROPHYLAXIS
     Dosage: DAILY
  5. HUMIRA [Suspect]
     Indication: PSORIASIS
     Dosage: INITAL DOSE
     Dates: start: 20110801, end: 20110801
  6. HUMIRA [Suspect]
     Dosage: FOR ONE MONTH
  7. METOPROLOL TARTRATE [Concomitant]
     Indication: HYPERTENSION
  8. DOXAZOSIN MESYLATE [Concomitant]
     Indication: FUNGAL SKIN INFECTION

REACTIONS (2)
  - DRUG ADMINISTRATION ERROR [None]
  - PSORIASIS [None]
